FAERS Safety Report 5133871-4 (Version None)
Quarter: 2006Q4

REPORT INFORMATION
  Report Type: 
  Country: None (occurrence: None)
  Receive Date: 20061018
  Receipt Date: 20061005
  Transmission Date: 20070319
  Serious: Yes (Hospitalization)
  Sender: FDA-Public Use
  Company Number: 2006US001683

PATIENT
  Age: 46 Year
  Sex: Female
  Weight: 102 kg

DRUGS (1)
  1. AMEVIVE [Suspect]
     Indication: PSORIASIS
     Dosage: 15 MG, WEEKLY, INTRAMUSCULAR
     Route: 030
     Dates: start: 20060209

REACTIONS (3)
  - LEUKOPENIA [None]
  - SEPSIS [None]
  - UPPER RESPIRATORY TRACT INFECTION [None]
